FAERS Safety Report 13170832 (Version 1)
Quarter: 2017Q1

REPORT INFORMATION
  Report Type: Spontaneous
  Country: US (occurrence: US)
  Receive Date: 20170201
  Receipt Date: 20170201
  Transmission Date: 20170428
  Serious: No
  Sender: FDA-Public Use
  Company Number: US-TEVA-697544USA

PATIENT
  Sex: Male

DRUGS (2)
  1. PREDNISONE. [Suspect]
     Active Substance: PREDNISONE
     Indication: SPINAL COLUMN STENOSIS
  2. PREDNISONE. [Suspect]
     Active Substance: PREDNISONE
     Indication: PAIN
     Route: 065

REACTIONS (4)
  - Depression [Unknown]
  - Pain [Unknown]
  - Aggression [Unknown]
  - Irritability [Unknown]
